FAERS Safety Report 11881424 (Version 1)
Quarter: 2015Q4

REPORT INFORMATION
  Report Type: Spontaneous
  Country: FR (occurrence: FR)
  Receive Date: 20151231
  Receipt Date: 20151231
  Transmission Date: 20160305
  Serious: Yes (Hospitalization)
  Sender: FDA-Public Use
  Company Number: FR-PFIZER INC-2015474356

PATIENT
  Age: 90 Year
  Sex: Female

DRUGS (7)
  1. CORDARONE [Suspect]
     Active Substance: AMIODARONE HYDROCHLORIDE
     Indication: ATRIAL FIBRILLATION
     Dosage: 200 MG, DAILY
     Route: 048
     Dates: end: 20151206
  2. TAHOR [Concomitant]
     Active Substance: ATORVASTATIN CALCIUM
     Dosage: UNK
  3. PREVISCAN [Concomitant]
     Active Substance: FLUINDIONE
     Dosage: UNK
  4. ALDACTONE [Concomitant]
     Active Substance: SPIRONOLACTONE
     Dosage: UNK
  5. LASILIX [Concomitant]
     Active Substance: FUROSEMIDE
     Dosage: UNK
  6. COVERSYL [Concomitant]
     Active Substance: PERINDOPRIL
     Dosage: UNK
  7. INEXIUM [Concomitant]
     Active Substance: ESOMEPRAZOLE
     Dosage: UNK

REACTIONS (5)
  - Cognitive disorder [Unknown]
  - Hyponatraemia [Unknown]
  - Disorientation [Unknown]
  - Dyspnoea [Recovering/Resolving]
  - Pulmonary mass [Unknown]

NARRATIVE: CASE EVENT DATE: 2015
